FAERS Safety Report 24022897 (Version 2)
Quarter: 2024Q3

REPORT INFORMATION
  Report Type: Report from Study
  Country: US (occurrence: US)
  Receive Date: 20240627
  Receipt Date: 20240710
  Transmission Date: 20241017
  Serious: No
  Sender: ROCHE
  Company Number: US-ROCHE-3478509

PATIENT
  Sex: Female

DRUGS (24)
  1. ALECENSA [Suspect]
     Active Substance: ALECTINIB HYDROCHLORIDE
     Indication: Thyroid cancer
     Dosage: TAKE 4 CAPSULES BY MOUTH TWO TIMES A DAY
     Route: 048
  2. TYLENOL [Concomitant]
     Active Substance: ACETAMINOPHEN
  3. ALUNBRIG [Concomitant]
     Active Substance: BRIGATINIB
  4. TUMS ULTRA [Concomitant]
     Active Substance: CALCIUM CARBONATE
  5. VITAMIN D3 [Concomitant]
     Active Substance: CHOLECALCIFEROL
  6. PROLIA [Concomitant]
     Active Substance: DENOSUMAB
  7. DESMOPRESSIN [Concomitant]
     Active Substance: DESMOPRESSIN
  8. DDAVP [Concomitant]
     Active Substance: DESMOPRESSIN ACETATE
  9. SINEQUAN [Concomitant]
     Active Substance: DOXEPIN HYDROCHLORIDE
  10. CYMBALTA [Concomitant]
     Active Substance: DULOXETINE HYDROCHLORIDE
  11. FLONASE [Concomitant]
     Active Substance: FLUTICASONE PROPIONATE
  12. NEURONTIN [Concomitant]
     Active Substance: GABAPENTIN
  13. GLUCOSAMINE [Concomitant]
     Active Substance: GLUCOSAMINE
  14. CHONDROITIN [Concomitant]
     Active Substance: CHONDROITIN
  15. SYNTHROID [Concomitant]
     Active Substance: LEVOTHYROXINE SODIUM
  16. LEVOTHROID [Concomitant]
     Active Substance: LEVOTHYROXINE SODIUM
  17. LORATADINE [Concomitant]
     Active Substance: LORATADINE
  18. ATIVAN [Concomitant]
     Active Substance: LORAZEPAM
  19. LUTEIN [Concomitant]
     Active Substance: LUTEIN
  20. ROSADAN [Concomitant]
     Active Substance: METRONIDAZOLE
  21. MIRALAX [Concomitant]
     Active Substance: POLYETHYLENE GLYCOL 3350
  22. COMPAZINE [Concomitant]
     Active Substance: PROCHLORPERAZINE MALEATE
  23. CRESTOR [Concomitant]
     Active Substance: ROSUVASTATIN CALCIUM
  24. DISALCID [Concomitant]
     Active Substance: SALSALATE

REACTIONS (2)
  - Off label use [Unknown]
  - No adverse event [Unknown]
